FAERS Safety Report 19145488 (Version 3)
Quarter: 2021Q2

REPORT INFORMATION
  Report Type: Spontaneous
  Country: JP (occurrence: JP)
  Receive Date: 20210416
  Receipt Date: 20210422
  Transmission Date: 20210717
  Serious: Yes (Life-Threatening, Hospitalization, Other)
  Sender: FDA-Public Use
  Company Number: JP-PFIZER INC-2021400075

PATIENT
  Age: 54 Year
  Sex: Female

DRUGS (3)
  1. METHOTREXATE. [Suspect]
     Active Substance: METHOTREXATE
     Indication: RHEUMATOID ARTHRITIS
     Dosage: 10 MG, WEEKLY
  2. IGURATIMOD [Concomitant]
     Active Substance: IGURATIMOD
     Indication: RHEUMATOID ARTHRITIS
     Dosage: 50 MG, 1X/DAY
  3. ADALIMUMAB [Concomitant]
     Active Substance: ADALIMUMAB
     Indication: RHEUMATOID ARTHRITIS
     Dosage: 40 MG, CYCLIC(FREQ:2 WK;EVERY OTHER WEEK)

REACTIONS (10)
  - Osteosclerosis [Recovered/Resolved]
  - Functional gastrointestinal disorder [Recovered/Resolved]
  - Spinal cord compression [Recovered/Resolved]
  - Epstein-Barr virus associated lymphoproliferative disorder [Recovered/Resolved]
  - Resorption bone increased [Recovered/Resolved]
  - Metastases to spine [Recovered/Resolved]
  - Hodgkin^s disease [Recovered/Resolved]
  - Extradural neoplasm [Recovered/Resolved]
  - Bladder dysfunction [Recovered/Resolved]
  - Spinal stenosis [Recovered/Resolved]
